APPROVED DRUG PRODUCT: EOVIST
Active Ingredient: GADOXETATE DISODIUM
Strength: 1.8143GM/10ML (181.43MG/ML)
Dosage Form/Route: SOLUTION;INTRAVENOUS
Application: N022090 | Product #001
Applicant: BAYER HEALTHCARE PHARMACEUTICALS INC
Approved: Jul 3, 2008 | RLD: Yes | RS: Yes | Type: RX